FAERS Safety Report 7441740-X (Version None)
Quarter: 2011Q2

REPORT INFORMATION
  Report Type: 
  Country: None (occurrence: None)
  Receive Date: 20110428
  Receipt Date: 20110422
  Transmission Date: 20111010
  Serious: Yes (Death, Hospitalization, Other)
  Sender: FDA-Public Use
  Company Number: US-NAPPMUNDI-USA-2011-0067119

PATIENT
  Sex: Female

DRUGS (1)
  1. DILAUDID [Suspect]
     Indication: PRODUCT USED FOR UNKNOWN INDICATION
     Dosage: UNK
     Dates: start: 20090601

REACTIONS (9)
  - CLOSTRIDIUM DIFFICILE SEPSIS [None]
  - PNEUMONIA [None]
  - CLOSTRIDIUM DIFFICILE COLITIS [None]
  - UNRESPONSIVE TO STIMULI [None]
  - CLOSTRIDIAL INFECTION [None]
  - VITAL FUNCTIONS ABNORMAL [None]
  - PYREXIA [None]
  - FEBRILE CONVULSION [None]
  - CYSTITIS [None]
